FAERS Safety Report 13889513 (Version 1)
Quarter: 2017Q3

REPORT INFORMATION
  Report Type: Spontaneous
  Country: US (occurrence: US)
  Receive Date: 20170822
  Receipt Date: 20170822
  Transmission Date: 20171127
  Serious: Yes (Hospitalization)
  Sender: FDA-Public Use
  Company Number: US-ROCHE-1203932

PATIENT
  Age: 67 Year
  Sex: Female
  Weight: 77.18 kg

DRUGS (3)
  1. SULFAZINE [Concomitant]
     Active Substance: SULFASALAZINE
     Dosage: 500 MGS 3 TABS
     Route: 048
  2. ACTEMRA [Suspect]
     Active Substance: TOCILIZUMAB
     Indication: RHEUMATOID ARTHRITIS
     Dosage: FOUR MOST RECENT DOSES WERE RECEIVED IN SUMMER OF 2012
     Route: 042
     Dates: start: 201201, end: 20120604
  3. PREDNISONE. [Concomitant]
     Active Substance: PREDNISONE
     Dosage: 10 MG- 2 TABLETS
     Route: 048

REACTIONS (4)
  - Cellulitis [Recovered/Resolved]
  - Peripheral swelling [Unknown]
  - Pain in extremity [Unknown]
  - Staphylococcal infection [Recovered/Resolved]

NARRATIVE: CASE EVENT DATE: 2012
